FAERS Safety Report 13693846 (Version 1)
Quarter: 2017Q2

REPORT INFORMATION
  Report Type: Spontaneous
  Country: US (occurrence: US)
  Receive Date: 20170626
  Receipt Date: 20170626
  Transmission Date: 20170830
  Serious: Yes (Other)
  Sender: FDA-Public Use
  Company Number: None

PATIENT
  Age: 47 Year
  Sex: Female
  Weight: 85.5 kg

DRUGS (1)
  1. DULOXETINE. [Suspect]
     Active Substance: DULOXETINE
     Indication: FIBROMYALGIA
     Dosage: ?          OTHER STRENGTH:MG;?
     Route: 048
     Dates: start: 20150201

REACTIONS (17)
  - Vomiting [None]
  - Frequent bowel movements [None]
  - Depression [None]
  - Malaise [None]
  - Headache [None]
  - Paraesthesia [None]
  - Myalgia [None]
  - Alopecia [None]
  - Impaired driving ability [None]
  - Suicidal ideation [None]
  - Arthralgia [None]
  - Anxiety [None]
  - Balance disorder [None]
  - Dependent personality disorder [None]
  - Feeling of despair [None]
  - Therapy change [None]
  - Crying [None]
